FAERS Safety Report 21504219 (Version 2)
Quarter: 2022Q4

REPORT INFORMATION
  Report Type: Report from Study
  Country: CA (occurrence: CA)
  Receive Date: 20221025
  Receipt Date: 20221028
  Transmission Date: 20230113
  Serious: Yes (Other)
  Sender: FDA-Public Use
  Company Number: CA-ABBVIE-4172189

PATIENT
  Sex: Female

DRUGS (2)
  1. RINVOQ [Suspect]
     Active Substance: UPADACITINIB
     Indication: Rheumatoid arthritis
     Dosage: START DATE 2022?FORM STRENGTH: 15 MG
     Route: 048
  2. RINVOQ [Suspect]
     Active Substance: UPADACITINIB
     Indication: Rheumatoid arthritis
     Dosage: FORM STRENGTH: 15 MG
     Route: 048
     Dates: start: 20200521, end: 202208

REACTIONS (8)
  - Rotator cuff syndrome [Unknown]
  - Muscle spasms [Not Recovered/Not Resolved]
  - Gait disturbance [Unknown]
  - Joint swelling [Unknown]
  - Illness [Unknown]
  - Pain in extremity [Not Recovered/Not Resolved]
  - Rash [Unknown]
  - Weight increased [Unknown]

NARRATIVE: CASE EVENT DATE: 20220101
